FAERS Safety Report 6219402-6 (Version None)
Quarter: 2009Q2

REPORT INFORMATION
  Report Type: 
  Country: None (occurrence: None)
  Receive Date: 20090609
  Receipt Date: 20090526
  Transmission Date: 20091009
  Serious: Yes (Life-Threatening, Other)
  Sender: FDA-Public Use
  Company Number: AU-BIOGENIDEC-2008BI007286

PATIENT
  Age: 38 Year
  Sex: Female

DRUGS (9)
  1. TYSABRI [Suspect]
     Indication: RELAPSING-REMITTING MULTIPLE SCLEROSIS
     Route: 042
     Dates: start: 20071206, end: 20080206
  2. TRIAZOLAM [Concomitant]
     Indication: INSOMNIA
     Route: 048
  3. COLOXYL WITH SENNA [Concomitant]
     Indication: CONSTIPATION
     Route: 048
  4. IMODIUM [Concomitant]
     Indication: DIARRHOEA
     Route: 048
  5. BRUFEN [Concomitant]
     Indication: PAIN
     Route: 048
  6. MAXOLON [Concomitant]
     Indication: NAUSEA
     Route: 048
  7. PANAMEX [Concomitant]
     Indication: PAIN
     Route: 048
  8. NORDETTE-21 [Concomitant]
     Indication: ORAL CONTRACEPTION
  9. HERBAL REMEDIES [Concomitant]
     Indication: DRUG USE FOR UNKNOWN INDICATION

REACTIONS (2)
  - CARBOHYDRATE ANTIGEN 125 INCREASED [None]
  - OVARIAN CYST [None]
